FAERS Safety Report 5515465-1 (Version None)
Quarter: 2007Q4

REPORT INFORMATION
  Report Type: 
  Country: None (occurrence: None)
  Receive Date: 20071113
  Receipt Date: 20070223
  Transmission Date: 20080405
  Serious: No
  Sender: FDA-Public Use
  Company Number: A0640782A

PATIENT
  Age: 45 Year
  Sex: Male

DRUGS (11)
  1. COREG [Suspect]
     Indication: DRUG USE FOR UNKNOWN INDICATION
     Dosage: 25MG TWICE PER DAY
     Route: 048
     Dates: start: 20060601
  2. BUSPAR [Concomitant]
  3. CYMBALTA [Concomitant]
  4. ALLEGRA D 24 HOUR [Concomitant]
  5. IBUPROFEN [Concomitant]
  6. LANTUS [Concomitant]
  7. HUMALOG [Concomitant]
  8. SYNTHROID [Concomitant]
  9. LISINOPRIL [Concomitant]
  10. ANDROGEL [Concomitant]
  11. SELMALEN [Concomitant]

REACTIONS (2)
  - DYSPNOEA [None]
  - HYPERHIDROSIS [None]
